FAERS Safety Report 24043419 (Version 1)
Quarter: 2024Q3

REPORT INFORMATION
  Report Type: Spontaneous
  Country: FR (occurrence: FR)
  Receive Date: 20240703
  Receipt Date: 20240703
  Transmission Date: 20241017
  Serious: Yes (Hospitalization, Other)
  Sender: GLAXOSMITHKLINE
  Company Number: None

PATIENT

DRUGS (6)
  1. VALACYCLOVIR HYDROCHLORIDE [Interacting]
     Active Substance: VALACYCLOVIR HYDROCHLORIDE
     Indication: Herpes zoster
     Dosage: 2 G, QD
     Route: 065
     Dates: start: 20171005, end: 20171007
  2. VALACYCLOVIR HYDROCHLORIDE [Interacting]
     Active Substance: VALACYCLOVIR HYDROCHLORIDE
     Dosage: 3 G, QD
     Route: 065
     Dates: start: 20171008, end: 20171009
  3. VALACYCLOVIR HYDROCHLORIDE [Interacting]
     Active Substance: VALACYCLOVIR HYDROCHLORIDE
     Dosage: 2 G, QD
     Route: 065
     Dates: start: 20171010, end: 20171017
  4. TACROLIMUS [Interacting]
     Active Substance: TACROLIMUS
     Indication: Prophylaxis against transplant rejection
     Dosage: 15 MG, QD
     Route: 048
     Dates: start: 2011
  5. METHOTREXATE [Concomitant]
     Active Substance: METHOTREXATE
     Indication: Product used for unknown indication
     Dosage: UNK
     Route: 065
  6. Previscan [Concomitant]
     Indication: Product used for unknown indication
     Dosage: UNK
     Route: 065

REACTIONS (1)
  - Renal tubular necrosis [Recovered/Resolved]

NARRATIVE: CASE EVENT DATE: 20171010
